FAERS Safety Report 19985467 (Version 1)
Quarter: 2021Q4

REPORT INFORMATION
  Report Type: Spontaneous
  Country: US (occurrence: US)
  Receive Date: 20211022
  Receipt Date: 20211022
  Transmission Date: 20220303
  Serious: Yes (Hospitalization, Other)
  Sender: FDA-Public Use
  Company Number: US-BAYER-2021A230180

PATIENT
  Age: 40 Year
  Sex: Female
  Weight: 67.6 kg

DRUGS (9)
  1. LEVONORGESTREL [Suspect]
     Active Substance: LEVONORGESTREL
     Indication: Contraception
  2. MYCAPSSA [Suspect]
     Active Substance: OCTREOTIDE
     Indication: Acromegaly
     Dosage: 20 MG AM AND 40 MG PM
     Route: 048
     Dates: start: 202011
  3. IMITREX [Concomitant]
     Active Substance: SUMATRIPTAN SUCCINATE
     Indication: Headache
     Dosage: 50 MG, PRN
     Dates: start: 20210304
  4. IMITREX [Concomitant]
     Active Substance: SUMATRIPTAN SUCCINATE
     Indication: Migraine
  5. PRONUTRIENTS PROBIOTIC [Concomitant]
     Indication: Nutritional supplementation
     Dosage: 1 DF, PRN
     Route: 048
  6. VITAMINS NOS [Concomitant]
     Active Substance: VITAMINS
     Indication: Nutritional supplementation
     Route: 048
  7. EPIPEN [Concomitant]
     Active Substance: EPINEPHRINE
     Indication: Anaphylactic reaction
     Dosage: UNK
  8. BENADRYL [Concomitant]
     Active Substance: DIPHENHYDRAMINE HYDROCHLORIDE
     Indication: Pruritus
     Dosage: 12.5 MG NIGHTLY, PRN
     Route: 048
  9. BENADRYL [Concomitant]
     Active Substance: DIPHENHYDRAMINE HYDROCHLORIDE
     Indication: Multiple allergies

REACTIONS (20)
  - Kidney infection [Recovered/Resolved]
  - Nephrolithiasis [Recovered/Resolved]
  - Urosepsis [None]
  - Acute kidney injury [None]
  - Escherichia urinary tract infection [None]
  - Migraine [Recovering/Resolving]
  - Premature menopause [None]
  - Contraindicated product administered [None]
  - Oestrogen deficiency [None]
  - Pyrexia [Recovered/Resolved]
  - Hyperhidrosis [Recovered/Resolved]
  - Chills [Recovered/Resolved]
  - Back pain [Recovered/Resolved]
  - Suprapubic pain [Recovered/Resolved]
  - Dysuria [None]
  - Pollakiuria [None]
  - Abdominal pain [None]
  - Hydronephrosis [None]
  - Renal colic [Recovered/Resolved]
  - Flank pain [Recovered/Resolved]

NARRATIVE: CASE EVENT DATE: 20201101
